FAERS Safety Report 7065148-4 (Version None)
Quarter: 2010Q4

REPORT INFORMATION
  Report Type: 
  Country: None (occurrence: None)
  Receive Date: 20101027
  Receipt Date: 20101019
  Transmission Date: 20110411
  Serious: Yes (Life-Threatening, Hospitalization)
  Sender: FDA-Public Use
  Company Number: JP-PFIZER INC-2010059008

PATIENT
  Age: 71 Year
  Sex: Male

DRUGS (8)
  1. ARGATROBAN [Suspect]
     Indication: EMBOLIC STROKE
     Dosage: 60 MG, DAILY
     Route: 041
     Dates: start: 20080611, end: 20080612
  2. ARGATROBAN [Suspect]
     Indication: CEREBRAL INFARCTION
     Dosage: 10 MG, 2X/DAY
     Route: 041
     Dates: start: 20080613, end: 20080618
  3. RADICUT [Suspect]
     Indication: EMBOLIC STROKE
     Dosage: 30 MG, 2X/DAY
     Route: 041
     Dates: start: 20080611, end: 20080624
  4. RADICUT [Suspect]
     Indication: CEREBRAL INFARCTION
  5. WARFARIN POTASSIUM [Suspect]
     Indication: EMBOLIC STROKE
     Dosage: 4 DF, UNK
     Route: 048
     Dates: start: 20080611, end: 20080613
  6. WARFARIN POTASSIUM [Suspect]
     Indication: CEREBRAL INFARCTION
     Dosage: 2 DF, UNK
     Route: 048
     Dates: start: 20080613, end: 20080616
  7. WARFARIN POTASSIUM [Suspect]
     Indication: ATRIAL FIBRILLATION
     Dosage: 3 DF, UNK
     Route: 048
     Dates: start: 20080616, end: 20080624
  8. WARFARIN POTASSIUM [Suspect]
     Dosage: UNK

REACTIONS (2)
  - ANEURYSM RUPTURED [None]
  - RETROPERITONEAL HAEMATOMA [None]
